FAERS Safety Report 24660512 (Version 1)
Quarter: 2024Q4

REPORT INFORMATION
  Report Type: Spontaneous
  Country: US (occurrence: US)
  Receive Date: 20241125
  Receipt Date: 20241125
  Transmission Date: 20250115
  Serious: No
  Sender: AMGEN
  Company Number: US-AMGEN-USASP2024230511

PATIENT

DRUGS (1)
  1. BEVACIZUMAB [Suspect]
     Active Substance: BEVACIZUMAB
     Indication: Brain radiation necrosis
     Dosage: 10 MILLIGRAM/KILOGRAM, Q2WK
     Route: 065

REACTIONS (4)
  - Off label use [Unknown]
  - Hypertension [Unknown]
  - Epistaxis [Unknown]
  - Proteinuria [Unknown]
